FAERS Safety Report 6568934-X (Version None)
Quarter: 2010Q1

REPORT INFORMATION
  Report Type: 
  Country: None (occurrence: None)
  Receive Date: 20100201
  Receipt Date: 20100201
  Transmission Date: 20100710
  Serious: Yes (Other)
  Sender: FDA-Public Use
  Company Number: None

PATIENT
  Sex: Female
  Weight: 104.3273 kg

DRUGS (1)
  1. ABILIFY [Suspect]
     Dosage: 2 MG ONCE DAILY MOUTH
     Route: 048
     Dates: start: 20081030, end: 20090226

REACTIONS (4)
  - AMNESIA [None]
  - ATRIAL FIBRILLATION [None]
  - CONFUSIONAL STATE [None]
  - SPEECH DISORDER [None]
